FAERS Safety Report 4928982-X (Version None)
Quarter: 2006Q1

REPORT INFORMATION
  Report Type: 
  Country: None (occurrence: None)
  Receive Date: 20060301
  Receipt Date: 20060220
  Transmission Date: 20060701
  Serious: Yes (Life-Threatening)
  Sender: FDA-Public Use
  Company Number: 436095

PATIENT
  Age: 41 Year
  Sex: Male

DRUGS (3)
  1. DILATREND [Suspect]
     Route: 048
     Dates: start: 20010615
  2. MYDOCALM [Suspect]
     Indication: BACK PAIN
     Dosage: 1TAB AS REQUIRED
     Route: 048
     Dates: start: 20040903
  3. TETANOL [Suspect]
     Route: 030
     Dates: start: 20050730, end: 20050730

REACTIONS (7)
  - ANAPHYLACTIC SHOCK [None]
  - ANGIONEUROTIC OEDEMA [None]
  - DYSPNOEA [None]
  - ERYTHEMA [None]
  - HYPOAESTHESIA [None]
  - PRURITUS GENERALISED [None]
  - SWELLING FACE [None]
